FAERS Safety Report 4548524-0 (Version None)
Quarter: 2004Q4

REPORT INFORMATION
  Report Type: 
  Country: None (occurrence: None)
  Receive Date: 20041227
  Receipt Date: 20041104
  Transmission Date: 20050328
  Serious: No
  Sender: FDA-Public Use
  Company Number: 04P-163-0280046-00

PATIENT
  Age: 70 Year
  Sex: Female
  Weight: 57.6068 kg

DRUGS (6)
  1. HUMIRA [Suspect]
     Indication: RHEUMATOID ARTHRITIS
     Dosage: 40 MG, 1 IN 2 WK, SUBCUTANEOUS
     Route: 058
     Dates: start: 20031018, end: 20040717
  2. PREDNISONE [Concomitant]
  3. ROFECOXIB [Concomitant]
  4. METHOTREXATE [Concomitant]
  5. ALENDRONATE SODIUM [Concomitant]
  6. FOLINIC ACID [Concomitant]

REACTIONS (2)
  - BASAL CELL CARCINOMA [None]
  - TOOTH ABSCESS [None]
